FAERS Safety Report 6104412-X (Version None)
Quarter: 2009Q1

REPORT INFORMATION
  Report Type: 
  Country: None (occurrence: None)
  Receive Date: 20090305
  Receipt Date: 20090209
  Transmission Date: 20090719
  Serious: No
  Sender: FDA-Public Use
  Company Number: US-JNJFOC-20090202771

PATIENT
  Sex: Male
  Weight: 126.1 kg

DRUGS (2)
  1. INVEGA [Suspect]
     Indication: SCHIZOPHRENIA
     Route: 048
  2. WELLBUTRIN XL [Concomitant]
     Indication: DEPRESSION

REACTIONS (1)
  - DRUG SCREEN POSITIVE [None]
